FAERS Safety Report 6484779-3 (Version None)
Quarter: 2009Q4

REPORT INFORMATION
  Report Type: 
  Country: None (occurrence: None)
  Receive Date: 20091209
  Receipt Date: 20081209
  Transmission Date: 20100525
  Serious: No
  Sender: FDA-Public Use
  Company Number: A0753202A

PATIENT
  Age: 72 Year
  Sex: Female
  Weight: 76.4 kg

DRUGS (3)
  1. AVANDAMET [Suspect]
     Dosage: 1TAB TWICE PER DAY
     Route: 048
     Dates: start: 20081014, end: 20081020
  2. GLIMEPIRIDE [Concomitant]
     Dosage: 4MG TWICE PER DAY
  3. ASPIRIN [Concomitant]
     Dosage: 81MG PER DAY

REACTIONS (5)
  - DYSGEUSIA [None]
  - FATIGUE [None]
  - FEELING ABNORMAL [None]
  - MALAISE [None]
  - NAUSEA [None]
